FAERS Safety Report 8947733 (Version 1)
Quarter: 2012Q4

REPORT INFORMATION
  Report Type: 
  Country: US (occurrence: US)
  Receive Date: 20121204
  Receipt Date: 20121204
  Transmission Date: 20130627
  Serious: Yes (Congenital Anomaly, Other)
  Sender: FDA-Public Use
  Company Number: US-PFIZER INC-2012300582

PATIENT
  Sex: Female
  Weight: 3.5 kg

DRUGS (8)
  1. ZOLOFT [Suspect]
     Indication: DEPRESSION
     Dosage: 200 mg, 1x/day
     Route: 064
     Dates: start: 19970720
  2. ZOLOFT [Suspect]
     Indication: BIPOLAR DISORDER
  3. INSULIN [Concomitant]
     Indication: DIABETES MELLITUS
     Dosage: UNK
     Route: 064
     Dates: start: 19970720
  4. FERROUS SULFATE [Concomitant]
     Dosage: 300 mg, 2x/day
     Route: 064
     Dates: start: 19990211
  5. SYNTHROID [Concomitant]
     Indication: HYPOTHYROIDISM
     Dosage: 0.1 mg, 1x/day
     Route: 064
     Dates: start: 19990210
  6. BETAMETHASONE [Concomitant]
     Dosage: 12 mg, 2x/day
     Route: 064
     Dates: start: 19990210
  7. PRENATAL VITAMINS [Concomitant]
     Dosage: UNK
     Route: 064
     Dates: start: 19990211
  8. NIFEDIPINE [Concomitant]
     Dosage: 10 mg, UNK
     Route: 064
     Dates: start: 19990212

REACTIONS (10)
  - Maternal exposure timing unspecified [Unknown]
  - Transposition of the great vessels [Unknown]
  - Pulmonary artery stenosis congenital [Unknown]
  - Patent ductus arteriosus [Unknown]
  - Ventricular septal defect [Recovered/Resolved]
  - Tricuspid valve incompetence [Unknown]
  - Mitral valve stenosis [Unknown]
  - Pulmonary valve incompetence [Unknown]
  - Atrial septal defect [Unknown]
  - Premature baby [Unknown]
